FAERS Safety Report 5755674-X (Version None)
Quarter: 2008Q2

REPORT INFORMATION
  Report Type: 
  Country: None (occurrence: None)
  Receive Date: 20080528
  Receipt Date: 20080514
  Transmission Date: 20081010
  Serious: Yes (Life-Threatening, Hospitalization)
  Sender: FDA-Public Use
  Company Number: DSJ-2008-02019

PATIENT
  Age: 77 Year
  Sex: Male
  Weight: 55 kg

DRUGS (11)
  1. OLMESARTAN MEDOXOMIL [Suspect]
     Indication: HYPERTENSION
     Dosage: 20 MG (1 IN 1 D), PER ORAL
     Route: 048
     Dates: start: 20070313, end: 20071213
  2. HERBESSER-R (DILTIAZEM HYDROCHLORIDE) (TABLET) (DILTIAZEM HYDROCHLORID [Suspect]
     Dosage: 100 MG (1 IN 1 D), PER ORAL
     Route: 048
     Dates: start: 20070514, end: 20071213
  3. HALFDIGOXIN (TABLET) [Suspect]
     Dosage: 0.125 MG (0.125 MG, 1 IN  D), PER ORAL
     Route: 048
     Dates: start: 20071002, end: 20071213
  4. ACTOS [Suspect]
     Dosage: 15 MG (1 IN 1 D), PER ORAL
     Route: 048
     Dates: start: 20030114, end: 20071213
  5. INSULIN (INSULIN) (INSULIN) [Suspect]
  6. ASPIRIN [Concomitant]
  7. ARGAMATE [Concomitant]
  8. BASEN (VOGLIBOSE) [Concomitant]
  9. KINEDAK (EPALRESTAT) [Concomitant]
  10. HUMALOG [Concomitant]
  11. LANTUS [Concomitant]

REACTIONS (16)
  - ATRIAL FLUTTER [None]
  - BLOOD PRESSURE IMMEASURABLE [None]
  - BLOOD PRESSURE INCREASED [None]
  - DIABETIC KETOACIDOSIS [None]
  - DIALYSIS [None]
  - DRUG INEFFECTIVE [None]
  - GASTROENTERITIS [None]
  - HEART RATE DECREASED [None]
  - HEPATIC FUNCTION ABNORMAL [None]
  - HYPERKALAEMIA [None]
  - HYPOALDOSTERONISM [None]
  - HYPOGLYCAEMIA [None]
  - OXYGEN SATURATION DECREASED [None]
  - PULSE PRESSURE DECREASED [None]
  - RENAL IMPAIRMENT [None]
  - TREATMENT NONCOMPLIANCE [None]
